FAERS Safety Report 19754907 (Version 1)
Quarter: 2021Q3

REPORT INFORMATION
  Report Type: Spontaneous
  Country: US (occurrence: US)
  Receive Date: 20210827
  Receipt Date: 20210827
  Transmission Date: 20211014
  Serious: No
  Sender: FDA-Public Use
  Company Number: US-ENDO PHARMACEUTICALS INC-2020-005162

PATIENT
  Age: 25 Year
  Sex: Female

DRUGS (2)
  1. DELESTROGEN [Suspect]
     Active Substance: ESTRADIOL VALERATE
     Indication: HORMONE REPLACEMENT THERAPY
     Dosage: 10 MG, WEEKLY
     Route: 065
     Dates: start: 20200701, end: 20200715
  2. DELESTROGEN [Suspect]
     Active Substance: ESTRADIOL VALERATE
     Dosage: 10 MG, WEEKLY
     Route: 065
     Dates: start: 2019

REACTIONS (2)
  - Liquid product physical issue [Not Recovered/Not Resolved]
  - Drug ineffective [Not Recovered/Not Resolved]

NARRATIVE: CASE EVENT DATE: 20200708
